FAERS Safety Report 25181448 (Version 1)
Quarter: 2025Q2

REPORT INFORMATION
  Report Type: Spontaneous
  Country: PL (occurrence: PL)
  Receive Date: 20250410
  Receipt Date: 20250410
  Transmission Date: 20250716
  Serious: Yes (Other)
  Sender: JOHNSON AND JOHNSON
  Company Number: None

PATIENT
  Age: 25 Year
  Sex: Female
  Weight: 60 kg

DRUGS (4)
  1. REMICADE [Suspect]
     Active Substance: INFLIXIMAB
     Indication: Crohn^s disease
     Route: 042
     Dates: start: 20210413, end: 20210413
  2. MESALAMINE [Concomitant]
     Active Substance: MESALAMINE
     Indication: Crohn^s disease
     Route: 048
     Dates: start: 2016
  3. METEX [Concomitant]
     Indication: Crohn^s disease
     Route: 058
     Dates: start: 2020
  4. FOLIC ACID [Concomitant]
     Active Substance: FOLIC ACID
     Indication: Crohn^s disease
     Route: 048
     Dates: start: 2020

REACTIONS (4)
  - Urticaria [Recovered/Resolved]
  - Dyspnoea [Recovered/Resolved]
  - Throat tightness [Recovered/Resolved]
  - Bronchospasm [Recovered/Resolved]

NARRATIVE: CASE EVENT DATE: 20210413
